FAERS Safety Report 25943225 (Version 1)
Quarter: 2025Q4

REPORT INFORMATION
  Report Type: Spontaneous
  Country: US (occurrence: None)
  Receive Date: 20251020
  Receipt Date: 20251020
  Transmission Date: 20260117
  Serious: Yes (Hospitalization)
  Sender: FDA-CTU
  Company Number: None

PATIENT
  Age: 54 Year
  Sex: Female

DRUGS (1)
  1. LORBRENA [Suspect]
     Active Substance: LORLATINIB
     Indication: Lung neoplasm malignant
     Dosage: FREQUENCY : DAILY;?
     Route: 048
     Dates: start: 20250924, end: 20251016

REACTIONS (4)
  - Pericarditis [None]
  - Pneumonitis [None]
  - Intentional dose omission [None]
  - Pulmonary oedema [None]

NARRATIVE: CASE EVENT DATE: 20251020
